FAERS Safety Report 16818677 (Version 2)
Quarter: 2021Q2

REPORT INFORMATION
  Report Type: Report from Study
  Country: US (occurrence: US)
  Receive Date: 20190917
  Receipt Date: 20210629
  Transmission Date: 20210716
  Serious: No
  Sender: FDA-Public Use
  Company Number: US-TAKEDA-2019TUS052364

PATIENT
  Age: 65 Year
  Sex: Female

DRUGS (2)
  1. VORTIOXETINE. [Suspect]
     Active Substance: VORTIOXETINE
     Dosage: 20 MILLIGRAM, QD
     Route: 065
     Dates: start: 20200313
  2. VORTIOXETINE. [Suspect]
     Active Substance: VORTIOXETINE
     Indication: MAJOR DEPRESSION
     Dosage: UNK
     Route: 065

REACTIONS (3)
  - Hyperhidrosis [Unknown]
  - Weight increased [Unknown]
  - Nausea [Unknown]

NARRATIVE: CASE EVENT DATE: 20200313
